FAERS Safety Report 18642851 (Version 1)
Quarter: 2020Q4

REPORT INFORMATION
  Report Type: Spontaneous
  Country: US (occurrence: US)
  Receive Date: 20201220
  Receipt Date: 20201220
  Transmission Date: 20210114
  Serious: Yes (Other)
  Sender: FDA-Public Use
  Company Number: None

PATIENT
  Age: 73 Year
  Sex: Male
  Weight: 56.25 kg

DRUGS (8)
  1. BUPROPION XL [Concomitant]
     Active Substance: BUPROPION
  2. VITAMIN D 1000 IU [Concomitant]
  3. MESALAMINE DELAYED-RELEASE TABLETS   1.2 G [Suspect]
     Active Substance: MESALAMINE
     Indication: COLITIS ULCERATIVE
     Dosage: ?          QUANTITY:4 TABLET(S);?
     Route: 048
     Dates: start: 20200401
  4. TRAZODONE [Concomitant]
     Active Substance: TRAZODONE HYDROCHLORIDE
  5. NIACIN 500 MG [Concomitant]
  6. PRAVASTATIN. [Concomitant]
     Active Substance: PRAVASTATIN
  7. WALGREENS MULTIVITAMIN WITH IRON [Concomitant]
  8. ASPIRIN 325 MG [Concomitant]
     Active Substance: ASPIRIN

REACTIONS (1)
  - Colitis ulcerative [None]

NARRATIVE: CASE EVENT DATE: 20200608
